FAERS Safety Report 23645382 (Version 1)
Quarter: 2024Q1

REPORT INFORMATION
  Report Type: Report from Study
  Country: AR (occurrence: AR)
  Receive Date: 20240318
  Receipt Date: 20240318
  Transmission Date: 20240410
  Serious: Yes (Hospitalization)
  Sender: FDA-Public Use
  Company Number: AR-AMGEN-ARGSL2024048244

PATIENT
  Age: 44 Year
  Sex: Female

DRUGS (2)
  1. VECTIBIX [Suspect]
     Active Substance: PANITUMUMAB
     Indication: Colorectal cancer metastatic
     Dosage: UNK, Q2WK, 14 DAYS
     Route: 065
     Dates: start: 20240301
  2. VECTIBIX [Suspect]
     Active Substance: PANITUMUMAB
     Dosage: UNK, 15 DAYS
     Route: 065
     Dates: start: 202403

REACTIONS (7)
  - Skin haemorrhage [Unknown]
  - Wound [Unknown]
  - Rash [Not Recovered/Not Resolved]
  - Skin fissures [Unknown]
  - Illness [Unknown]
  - Acne [Unknown]
  - Ear haemorrhage [Unknown]

NARRATIVE: CASE EVENT DATE: 20240301
